FAERS Safety Report 5113272-5 (Version None)
Quarter: 2006Q3

REPORT INFORMATION
  Report Type: 
  Country: None (occurrence: None)
  Receive Date: 20060920
  Receipt Date: 20060908
  Transmission Date: 20061208
  Serious: Yes (Hospitalization, Disabling)
  Sender: FDA-Public Use
  Company Number: CERZ-11296

PATIENT
  Age: 55 Year
  Sex: Female
  Weight: 66.7 kg

DRUGS (1)
  1. CEREZYME [Suspect]
     Indication: GAUCHER'S DISEASE
     Dosage: 60 U/KG Q2WKS IV
     Route: 042
     Dates: start: 19970409

REACTIONS (3)
  - ABASIA [None]
  - FAILURE OF IMPLANT [None]
  - SURGICAL PROCEDURE REPEATED [None]
